FAERS Safety Report 11307683 (Version 3)
Quarter: 2015Q3

REPORT INFORMATION
  Report Type: Spontaneous
  Country: IT (occurrence: IT)
  Receive Date: 20150724
  Receipt Date: 20150820
  Transmission Date: 20151125
  Serious: Yes (Hospitalization, Other)
  Sender: FDA-Public Use
  Company Number: IT-ROCHE-1611509

PATIENT
  Age: 73 Year
  Sex: Female

DRUGS (13)
  1. LANOXIN [Concomitant]
     Active Substance: DIGOXIN
     Route: 065
  2. PANTORC [Concomitant]
     Active Substance: PANTOPRAZOLE SODIUM
     Route: 065
  3. ALDACTONE (ITALY) [Concomitant]
     Route: 065
  4. DUOPLAVIN [Concomitant]
     Active Substance: ASPIRIN\CLOPIDOGREL
     Dosage: 100/75 MG
     Route: 065
  5. LUCENTIS [Suspect]
     Active Substance: RANIBIZUMAB
     Indication: AGE-RELATED MACULAR DEGENERATION
     Dosage: 10 MG/ML
     Route: 050
     Dates: start: 20140820
  6. EUTIROX [Concomitant]
     Active Substance: LEVOTHYROXINE SODIUM
     Route: 065
  7. RAMIPRIL. [Concomitant]
     Active Substance: RAMIPRIL
  8. INSULIN [Concomitant]
     Active Substance: INSULIN NOS
  9. LASIX [Concomitant]
     Active Substance: FUROSEMIDE
     Route: 065
  10. LUCENTIS [Suspect]
     Active Substance: RANIBIZUMAB
     Route: 050
     Dates: start: 20140922
  11. LUCENTIS [Suspect]
     Active Substance: RANIBIZUMAB
     Route: 050
     Dates: start: 20141028
  12. LUCENTIS [Suspect]
     Active Substance: RANIBIZUMAB
     Route: 050
     Dates: start: 20150120
  13. LUCENTIS [Suspect]
     Active Substance: RANIBIZUMAB
     Route: 050
     Dates: start: 20150721

REACTIONS (11)
  - Blood pressure increased [Unknown]
  - Heteroplasia [Unknown]
  - Oedema peripheral [Not Recovered/Not Resolved]
  - Weight increased [Unknown]
  - Femoral artery occlusion [Recovered/Resolved with Sequelae]
  - Breath sounds abnormal [Unknown]
  - Goitre [Unknown]
  - Osteonecrosis [Unknown]
  - Ankle impingement [Unknown]
  - Dyspnoea [Unknown]
  - Cardiac murmur [Unknown]

NARRATIVE: CASE EVENT DATE: 20150422
